FAERS Safety Report 5294207-1 (Version None)
Quarter: 2007Q2

REPORT INFORMATION
  Report Type: 
  Country: None (occurrence: None)
  Receive Date: 20070412
  Receipt Date: 20070403
  Transmission Date: 20071010
  Serious: Yes (Other)
  Sender: FDA-Public Use
  Company Number: JP-SP-2007-00906

PATIENT
  Age: 69 Year
  Sex: Male

DRUGS (6)
  1. IMMUCYST [Suspect]
     Indication: CARCINOMA IN SITU OF BLADDER
     Route: 043
     Dates: start: 20061204, end: 20070112
  2. TAMSULOSIN HCL [Concomitant]
     Route: 048
  3. NIFEDIPINE [Concomitant]
     Route: 048
  4. CHOREI-TO [Concomitant]
     Route: 048
  5. LEVOFLOXACIN [Concomitant]
     Route: 048
  6. LANSOPRAZOLE [Concomitant]
     Route: 048

REACTIONS (3)
  - ARTHRALGIA [None]
  - CONJUNCTIVITIS [None]
  - REITER'S SYNDROME [None]
